FAERS Safety Report 22218865 (Version 1)
Quarter: 2023Q2

REPORT INFORMATION
  Report Type: Report from Study
  Country: US (occurrence: US)
  Receive Date: 20230417
  Receipt Date: 20230417
  Transmission Date: 20230722
  Serious: Yes (Other)
  Sender: FDA-Public Use
  Company Number: US-ABBVIE-4728812

PATIENT
  Sex: Male

DRUGS (1)
  1. VENCLEXTA [Suspect]
     Active Substance: VENETOCLAX
     Indication: Acute myelomonocytic leukaemia
     Dosage: TAKE 1 TABLET OF 50 MG BY MOUTH DAILY WITH TWO 10MG TABLETS (70MG TOTAL) WITH FOOD AND FULL GLASS...
     Route: 048
     Dates: end: 202303

REACTIONS (1)
  - Stem cell transplant [Unknown]
